FAERS Safety Report 11930576 (Version 1)
Quarter: 2016Q1

REPORT INFORMATION
  Report Type: Spontaneous
  Country: US (occurrence: None)
  Receive Date: 20160120
  Receipt Date: 20160120
  Transmission Date: 20160526
  Serious: Yes (Hospitalization)
  Sender: FDA-Public Use
  Company Number: None

PATIENT
  Age: 71 Year
  Sex: Male
  Weight: 70.3 kg

DRUGS (2)
  1. DEXAMETHASONE. [Suspect]
     Active Substance: DEXAMETHASONE
     Dates: end: 20160107
  2. VELCADE [Suspect]
     Active Substance: BORTEZOMIB
     Dates: end: 20160104

REACTIONS (6)
  - Hyponatraemia [None]
  - Hyperglycaemia [None]
  - Diabetic ketoacidosis [None]
  - Carotid artery stenosis [None]
  - Cerebrovascular accident [None]
  - Creatinine renal clearance abnormal [None]

NARRATIVE: CASE EVENT DATE: 20160107
